FAERS Safety Report 11826426 (Version 2)
Quarter: 2015Q4

REPORT INFORMATION
  Report Type: Spontaneous
  Country: US (occurrence: US)
  Receive Date: 20151211
  Receipt Date: 20151216
  Transmission Date: 20160305
  Serious: No
  Sender: FDA-Public Use
  Company Number: US-PFIZER INC-2015355496

PATIENT
  Age: 51 Year
  Sex: Female

DRUGS (1)
  1. ADVIL PM [Suspect]
     Active Substance: DIPHENHYDRAMINE CITRATE\IBUPROFEN
     Indication: HEADACHE
     Dosage: 1 DF, AS NEEDED

REACTIONS (3)
  - Product physical issue [Recovered/Resolved]
  - Poor quality drug administered [Recovered/Resolved]
  - Memory impairment [Unknown]
